FAERS Safety Report 5812930-4 (Version None)
Quarter: 2008Q3

REPORT INFORMATION
  Report Type: 
  Country: None (occurrence: None)
  Receive Date: 20080717
  Receipt Date: 20070730
  Transmission Date: 20090109
  Serious: No
  Sender: FDA-Public Use
  Company Number: A0666664A

PATIENT
  Age: 48 Year
  Sex: Female

DRUGS (1)
  1. NICORETTE [Suspect]

REACTIONS (3)
  - INTENTIONAL DRUG MISUSE [None]
  - PHARMACEUTICAL PRODUCT COMPLAINT [None]
  - STOMACH DISCOMFORT [None]
